FAERS Safety Report 12266655 (Version 1)
Quarter: 2016Q2

REPORT INFORMATION
  Report Type: Spontaneous
  Country: US (occurrence: US)
  Receive Date: 20160414
  Receipt Date: 20160414
  Transmission Date: 20160815
  Serious: No
  Sender: FDA-Public Use
  Company Number: US-TEVA-581505USA

PATIENT
  Age: 80 Year
  Sex: Female
  Weight: 54.48 kg

DRUGS (1)
  1. GABAPENTIN. [Suspect]
     Active Substance: GABAPENTIN
     Route: 048
     Dates: start: 20150709, end: 20150723

REACTIONS (4)
  - Product taste abnormal [Unknown]
  - Tinnitus [Unknown]
  - Medication residue present [Unknown]
  - Product physical issue [Unknown]

NARRATIVE: CASE EVENT DATE: 201507
